FAERS Safety Report 10203715 (Version 2)
Quarter: 2014Q2

REPORT INFORMATION
  Report Type: Spontaneous
  Country: GB (occurrence: GB)
  Receive Date: 20140529
  Receipt Date: 20140620
  Transmission Date: 20141212
  Serious: Yes (Hospitalization, Other)
  Sender: FDA-Public Use
  Company Number: GB-ELI_LILLY_AND_COMPANY-GB201405005124

PATIENT
  Sex: Male
  Weight: 75.3 kg

DRUGS (4)
  1. OLANZAPINE [Suspect]
     Indication: PRODUCT USED FOR UNKNOWN INDICATION
     Dosage: 300 MG, 2/W
     Route: 030
     Dates: start: 20140414
  2. PROCYCLIDINE [Concomitant]
     Dosage: 5 MG, UNK
     Route: 048
  3. RAMIPRIL [Concomitant]
     Dosage: 2.5 MG, UNK
     Route: 048
  4. SIMVASTATIN [Concomitant]
     Dosage: 40 MG, UNK
     Route: 048

REACTIONS (3)
  - Dysarthria [Recovered/Resolved]
  - Sedation [Recovered/Resolved]
  - Dizziness [Recovered/Resolved]
